FAERS Safety Report 8915222 (Version 2)
Quarter: 2013Q4

REPORT INFORMATION
  Report Type: Report from Study
  Country: US (occurrence: US)
  Receive Date: 20121119
  Receipt Date: 20131015
  Transmission Date: 20140711
  Serious: Yes (Hospitalization, Other)
  Sender: FDA-Public Use
  Company Number: US-ELI_LILLY_AND_COMPANY-US201211002905

PATIENT
  Sex: Male

DRUGS (3)
  1. TERIPARATIDE [Suspect]
     Indication: OSTEOPOROSIS
     Dosage: 20 UG, QD
     Dates: start: 201207
  2. MIRAPEX [Concomitant]
     Route: 065
  3. SINEMET [Concomitant]
     Dosage: UNK

REACTIONS (9)
  - Orchitis [Recovering/Resolving]
  - Muscular weakness [Unknown]
  - Parkinson^s disease [Not Recovered/Not Resolved]
  - Feeling abnormal [Not Recovered/Not Resolved]
  - Muscle spasms [Unknown]
  - Burning sensation [Unknown]
  - Gait disturbance [Unknown]
  - Fatigue [Unknown]
  - Somnolence [Unknown]
